FAERS Safety Report 9642710 (Version 1)
Quarter: 2013Q4

REPORT INFORMATION
  Report Type: Spontaneous
  Country: DE (occurrence: DE)
  Receive Date: 20131024
  Receipt Date: 20131024
  Transmission Date: 20140711
  Serious: Yes (Other)
  Sender: FDA-Public Use
  Company Number: DE-GE HEALTHCARE MEDICAL DIAGNOSTICS-OMPQ-PR-1310S-1242

PATIENT
  Age: 32 Year
  Sex: Female
  Weight: 62 kg

DRUGS (6)
  1. ACCUPAQUE [Suspect]
     Indication: DYSPNOEA
     Route: 042
     Dates: start: 20131017, end: 20131017
  2. ACCUPAQUE [Suspect]
     Indication: INFLAMMATION
  3. ACCUPAQUE [Suspect]
     Indication: ELECTROPHORESIS PROTEIN
  4. ACCUPAQUE [Suspect]
     Indication: BLOOD UREA
  5. ACCUPAQUE [Suspect]
     Indication: BLOOD THYROID STIMULATING HORMONE
  6. ACCUPAQUE [Suspect]
     Indication: DIAGNOSTIC PROCEDURE

REACTIONS (2)
  - Oedema mucosal [Recovered/Resolved]
  - Skin reaction [Recovered/Resolved]
